FAERS Safety Report 17688934 (Version 3)
Quarter: 2020Q2

REPORT INFORMATION
  Report Type: Report from Study
  Country: PE (occurrence: PE)
  Receive Date: 20200421
  Receipt Date: 20200604
  Transmission Date: 20200714
  Serious: Yes (Life-Threatening, Hospitalization, Other)
  Sender: FDA-Public Use
  Company Number: NVSC2019PE084816

PATIENT
  Age: 70 Year
  Sex: Female

DRUGS (2)
  1. REVOLADE [Suspect]
     Active Substance: ELTROMBOPAG
     Dosage: 50 MG, QD
     Route: 048
     Dates: end: 202005
  2. REVOLADE [Suspect]
     Active Substance: ELTROMBOPAG
     Indication: IMMUNE THROMBOCYTOPENIA
     Dosage: 50 MG, QD
     Route: 048
     Dates: start: 20190810, end: 20200421

REACTIONS (10)
  - Haematochezia [Recovering/Resolving]
  - Contusion [Recovering/Resolving]
  - Platelet count decreased [Not Recovered/Not Resolved]
  - Haemoglobin abnormal [Unknown]
  - White blood cell disorder [Unknown]
  - Haemoglobin decreased [Not Recovered/Not Resolved]
  - Epilepsy [Unknown]
  - Haematoma [Recovering/Resolving]
  - Tongue biting [Unknown]
  - Mouth haemorrhage [Recovering/Resolving]

NARRATIVE: CASE EVENT DATE: 20191221
